FAERS Safety Report 8228447-6 (Version None)
Quarter: 2012Q1

REPORT INFORMATION
  Report Type: 
  Country: None (occurrence: None)
  Receive Date: 20120322
  Receipt Date: 20110726
  Transmission Date: 20120608
  Serious: Yes (Death)
  Sender: FDA-Public Use
  Company Number: US-BRISTOL-MYERS SQUIBB COMPANY-15856677

PATIENT
  Age: 57 Year
  Sex: Male
  Weight: 82 kg

DRUGS (12)
  1. MIRACLE MOUTHWASH [Concomitant]
  2. MORPHINE [Concomitant]
     Route: 042
  3. ZOFRAN [Concomitant]
  4. ERBITUX [Suspect]
     Indication: HEAD AND NECK CANCER
     Dosage: TOTAL:8 VIALS, 100MG 09C00376A;NOV2012 09C00513A;NOV2012 09C00283A;AUG2012,NO OF INF:1
     Route: 042
     Dates: start: 20110624
  5. MIRALAX [Concomitant]
  6. OMEPRAZOLE [Concomitant]
  7. PANTOPRAZOLE [Concomitant]
  8. DALTEPARIN SODIUM [Concomitant]
     Dosage: 1DF: 5000UNITS
     Route: 058
  9. COMPAZINE [Concomitant]
  10. PHENERGAN [Concomitant]
     Dosage: SUPPOSITORY
  11. REGLAN [Concomitant]
     Route: 042
  12. BENADRYL [Concomitant]
     Indication: PREMEDICATION
     Route: 042

REACTIONS (1)
  - ANAPHYLACTIC REACTION [None]
